FAERS Safety Report 25340356 (Version 2)
Quarter: 2025Q3

REPORT INFORMATION
  Report Type: Spontaneous
  Country: US (occurrence: US)
  Receive Date: 20250521
  Receipt Date: 20250822
  Transmission Date: 20251021
  Serious: No
  Sender: AZURITY PHARMACEUTICALS
  Company Number: US-AZURITY PHARMACEUTICALS, INC.-AZR202503-000926

PATIENT
  Sex: Male

DRUGS (2)
  1. DANZITEN [Suspect]
     Active Substance: NILOTINIB
     Indication: Chronic myeloid leukaemia
     Route: 065
     Dates: start: 20250228
  2. DANZITEN [Suspect]
     Active Substance: NILOTINIB
     Indication: Philadelphia chromosome test

REACTIONS (4)
  - Lacrimation increased [Unknown]
  - Rhinorrhoea [Unknown]
  - Gastrointestinal disorder [Unknown]
  - Night sweats [Unknown]
